FAERS Safety Report 4370057-5 (Version None)
Quarter: 2004Q2

REPORT INFORMATION
  Report Type: 
  Country: None (occurrence: None)
  Receive Date: 20040527
  Receipt Date: 20040514
  Transmission Date: 20050107
  Serious: Yes (Death)
  Sender: FDA-Public Use
  Company Number: 2004SE02277

PATIENT
  Age: 22 Year
  Sex: Male

DRUGS (4)
  1. SEROQUEL [Suspect]
     Indication: SCHIZOPHRENIA
     Dosage: 400 MG DAILY PO
     Route: 048
     Dates: start: 20030101
  2. CIPRAMIL [Concomitant]
  3. RIVOTRIL [Concomitant]
  4. TRUXAL [Concomitant]

REACTIONS (6)
  - CARDIAC ARREST [None]
  - CIRCULATORY COLLAPSE [None]
  - DISCOMFORT [None]
  - DYSPNOEA [None]
  - LOSS OF CONSCIOUSNESS [None]
  - PULSE ABSENT [None]
